FAERS Safety Report 16353572 (Version 5)
Quarter: 2020Q3

REPORT INFORMATION
  Report Type: Report from Study
  Country: US (occurrence: US)
  Receive Date: 20190524
  Receipt Date: 20200701
  Transmission Date: 20201102
  Serious: Yes (Hospitalization, Other)
  Sender: FDA-Public Use
  Company Number: US-BIOVITRUM-2019US1104

PATIENT
  Age: 8 Month
  Sex: Female

DRUGS (3)
  1. KINERET [Suspect]
     Active Substance: ANAKINRA
     Route: 058
     Dates: start: 20190508
  2. KINERET [Suspect]
     Active Substance: ANAKINRA
     Indication: PYREXIA
     Dosage: 7.5 MG DAILY
     Route: 058
     Dates: start: 20190509
  3. KINERET [Suspect]
     Active Substance: ANAKINRA
     Route: 058
     Dates: start: 20190509

REACTIONS (6)
  - Respiratory syncytial virus infection [Unknown]
  - Influenza [Unknown]
  - Bacterial infection [Unknown]
  - Haematochezia [Unknown]
  - Hepatic enzyme increased [Unknown]
  - Off label use [Not Recovered/Not Resolved]

NARRATIVE: CASE EVENT DATE: 201905
